FAERS Safety Report 23789443 (Version 1)
Quarter: 2024Q2

REPORT INFORMATION
  Report Type: Spontaneous
  Country: US (occurrence: US)
  Receive Date: 20240426
  Receipt Date: 20240426
  Transmission Date: 20240716
  Serious: No
  Sender: FDA-Public Use
  Company Number: US-PFIZER INC-202400095723

PATIENT
  Age: 86 Year
  Sex: Female

DRUGS (2)
  1. INLYTA [Suspect]
     Active Substance: AXITINIB
     Dosage: 1 PILL TWICE A DAY
  2. INLYTA [Suspect]
     Active Substance: AXITINIB
     Dosage: 2 TABLETS (2 MG TOTAL) TWO TIMES DAILY
     Dates: start: 20230323

REACTIONS (1)
  - Fatigue [Not Recovered/Not Resolved]

NARRATIVE: CASE EVENT DATE: 20240101
